FAERS Safety Report 8972549 (Version 1)
Quarter: 2012Q4

REPORT INFORMATION
  Report Type: 
  Country: BR (occurrence: BR)
  Receive Date: 20121218
  Receipt Date: 20121218
  Transmission Date: 20130627
  Serious: Yes (Death)
  Sender: FDA-Public Use
  Company Number: BR-PFIZER INC-2012169263

PATIENT
  Age: 69 Year
  Sex: Male
  Weight: 68 kg

DRUGS (3)
  1. SUTENT [Suspect]
     Indication: RENAL CANCER
     Dosage: 1 tablet of 50 mg, 1x/day
     Route: 048
     Dates: start: 20111212
  2. METFORMIN [Concomitant]
     Dosage: 2 tablets daily (strenght 850mg)
  3. GLIBENCLAMIDE [Concomitant]
     Dosage: 4 tablets daily (strenght 5mg)

REACTIONS (2)
  - Death [Fatal]
  - Skin wound [Unknown]
